FAERS Safety Report 6619067-5 (Version None)
Quarter: 2010Q1

REPORT INFORMATION
  Report Type: 
  Country: None (occurrence: None)
  Receive Date: 20100308
  Receipt Date: 20100226
  Transmission Date: 20100710
  Serious: Yes (Other)
  Sender: FDA-Public Use
  Company Number: FR-ROCHE-688547

PATIENT
  Sex: Male

DRUGS (5)
  1. BEVACIZUMAB [Suspect]
     Indication: RENAL CANCER METASTATIC
     Dosage: DRUG WAS TEMPERARILY INTERRUPTED.
     Route: 065
     Dates: end: 20100226
  2. TORISEL [Suspect]
     Indication: RENAL CANCER METASTATIC
     Dosage: DATE OF LAST DOSE PRIOR TO SAE:26 FEBRUARY 2010.
     Route: 065
     Dates: start: 20100226
  3. JANUVIA [Concomitant]
     Dosage: TOTAL DAILY DOSE REPORTED AS 1 TABLET.
     Dates: start: 20091201
  4. ESIDRIX [Concomitant]
     Dosage: TOTAL DAILY DOSE REPORTED AS 1 TABLET. START DATE WAS REPORTED AS 04 JAN
  5. COVERAM [Concomitant]
     Dosage: TOTAL DAILY DOSE REPORTED AS 1 TABLET.
     Dates: start: 20100104

REACTIONS (1)
  - OSTEONECROSIS [None]
